FAERS Safety Report 15255131 (Version 3)
Quarter: 2019Q3

REPORT INFORMATION
  Report Type: Spontaneous
  Country: US (occurrence: US)
  Receive Date: 20180808
  Receipt Date: 20190829
  Transmission Date: 20191004
  Serious: No
  Sender: FDA-Public Use
  Company Number: US-PFIZER INC-2018317023

PATIENT
  Age: 59 Year
  Sex: Female

DRUGS (2)
  1. TREMADONE [Concomitant]
     Active Substance: HERBALS\VITAMINS
     Dosage: UNK
  2. LYRICA [Suspect]
     Active Substance: PREGABALIN
     Indication: NEUROPATHY PERIPHERAL
     Dosage: UNK

REACTIONS (2)
  - Pain in extremity [Unknown]
  - Therapeutic product effect incomplete [Unknown]
